FAERS Safety Report 25024378 (Version 3)
Quarter: 2025Q2

REPORT INFORMATION
  Report Type: Spontaneous
  Country: US (occurrence: US)
  Receive Date: 20250228
  Receipt Date: 20250529
  Transmission Date: 20250717
  Serious: Yes (Other)
  Sender: BRISTOL-MYERS SQUIBB COMPANY
  Company Number: US-EXELIXIS-EXL-2025-005224

PATIENT
  Age: 53 Year
  Sex: Male
  Weight: 4.535 kg

DRUGS (4)
  1. NIVOLUMAB [Suspect]
     Active Substance: NIVOLUMAB
     Indication: Metastases to liver
  2. NIVOLUMAB [Suspect]
     Active Substance: NIVOLUMAB
     Indication: Metastasis
  3. CABOMETYX [Suspect]
     Active Substance: CABOZANTINIB S-MALATE
     Indication: Metastases to liver
     Route: 048
     Dates: start: 20250124
  4. CABOMETYX [Suspect]
     Active Substance: CABOZANTINIB S-MALATE
     Indication: Metastasis

REACTIONS (7)
  - Intra-abdominal fluid collection [Unknown]
  - Rash [Recovered/Resolved]
  - Nausea [Unknown]
  - Fatigue [Recovering/Resolving]
  - Vomiting [Unknown]
  - Loss of personal independence in daily activities [Recovering/Resolving]
  - Off label use [Unknown]
